FAERS Safety Report 7348110-3 (Version None)
Quarter: 2011Q1

REPORT INFORMATION
  Report Type: 
  Country: None (occurrence: None)
  Receive Date: 20110311
  Receipt Date: 20110308
  Transmission Date: 20110831
  Serious: Yes (Hospitalization, Other)
  Sender: FDA-Public Use
  Company Number: US-ABBOTT-10P-163-0677984-00

PATIENT
  Sex: Male
  Weight: 86.26 kg

DRUGS (20)
  1. TRILIPIX [Suspect]
     Indication: HIGH DENSITY LIPOPROTEIN DECREASED
  2. MORPHINE SULFATE [Concomitant]
     Indication: PAIN
     Route: 048
  3. LANTUS [Concomitant]
  4. MULTI-VITAMIN [Concomitant]
     Indication: PRODUCT USED FOR UNKNOWN INDICATION
     Route: 048
  5. CREON [Concomitant]
     Indication: PRODUCT USED FOR UNKNOWN INDICATION
     Route: 048
  6. METOPROLOL [Concomitant]
     Indication: PRODUCT USED FOR UNKNOWN INDICATION
     Route: 048
  7. DOCUSATE [Concomitant]
     Indication: PRODUCT USED FOR UNKNOWN INDICATION
     Route: 048
  8. PANTOPRAZOLE [Concomitant]
     Indication: GASTROOESOPHAGEAL REFLUX DISEASE
     Route: 048
  9. HUMALOG [Concomitant]
     Indication: PRODUCT USED FOR UNKNOWN INDICATION
  10. HUMALOG [Concomitant]
  11. NADALAT [Concomitant]
     Indication: HYPERTENSION
  12. PROTONIX [Concomitant]
     Indication: PRODUCT USED FOR UNKNOWN INDICATION
  13. CRESTOR [Concomitant]
     Indication: BLOOD CHOLESTEROL INCREASED
     Dates: start: 20011022
  14. CREON [Concomitant]
     Indication: ENZYME SUPPLEMENTATION
  15. ZOFRAN [Concomitant]
     Indication: NAUSEA
  16. LANTUS [Concomitant]
     Indication: PRODUCT USED FOR UNKNOWN INDICATION
     Route: 058
  17. TRILIPIX [Suspect]
     Indication: BLOOD TRIGLYCERIDES INCREASED
     Dates: start: 20100701, end: 20101001
  18. MIRALAX [Concomitant]
     Indication: CONSTIPATION
     Route: 048
  19. LISINOPRIL [Concomitant]
     Indication: HYPERTENSION
  20. SENNA [Concomitant]
     Indication: CONSTIPATION
     Route: 048

REACTIONS (22)
  - POST PROCEDURAL HAEMORRHAGE [None]
  - DYSLIPIDAEMIA [None]
  - BODY TEMPERATURE INCREASED [None]
  - RECTAL HAEMORRHAGE [None]
  - ANXIETY [None]
  - DEPRESSION [None]
  - RESPIRATORY DISTRESS [None]
  - PYREXIA [None]
  - CRYING [None]
  - PANCREATITIS [None]
  - PANCREATITIS NECROTISING [None]
  - HYPERTENSION [None]
  - DIARRHOEA [None]
  - PANCREATIC PSEUDOCYST [None]
  - ABDOMINAL PAIN [None]
  - INSOMNIA [None]
  - ANAEMIA [None]
  - DEVICE DISLOCATION [None]
  - BILE DUCT OBSTRUCTION [None]
  - TYPE 1 DIABETES MELLITUS [None]
  - CONFUSIONAL STATE [None]
  - LETHARGY [None]
